FAERS Safety Report 5379967-3 (Version None)
Quarter: 2007Q3

REPORT INFORMATION
  Report Type: 
  Country: None (occurrence: None)
  Receive Date: 20070706
  Receipt Date: 20070627
  Transmission Date: 20080115
  Serious: Yes (Hospitalization)
  Sender: FDA-Public Use
  Company Number: US-JNJFOC-20070700006

PATIENT
  Sex: Male
  Weight: 56.7 kg

DRUGS (4)
  1. DURAGESIC-100 [Suspect]
     Indication: NEOPLASM MALIGNANT
     Route: 062
  2. LORAZEPAM [Concomitant]
     Indication: PANIC ATTACK
     Route: 048
  3. AMLODIPINE [Concomitant]
     Indication: BLOOD PRESSURE
     Route: 048
  4. MEGESTROL ACETATE [Concomitant]
     Indication: DECREASED APPETITE
     Route: 048

REACTIONS (3)
  - DYSPHAGIA [None]
  - INCORRECT DRUG ADMINISTRATION DURATION [None]
  - ORAL INFECTION [None]
